FAERS Safety Report 10730092 (Version 1)
Quarter: 2015Q1

REPORT INFORMATION
  Report Type: Spontaneous
  Country: US (occurrence: US)
  Receive Date: 20150122
  Receipt Date: 20150122
  Transmission Date: 20150721
  Serious: Yes (Other)
  Sender: FDA-Public Use
  Company Number: US-CELGENE-163-21880-13112523

PATIENT
  Sex: Male
  Weight: 77.63 kg

DRUGS (3)
  1. DEXAMETHASONE. [Suspect]
     Active Substance: DEXAMETHASONE
     Indication: PLASMA CELL MYELOMA
     Route: 065
  2. REVLIMID [Suspect]
     Active Substance: LENALIDOMIDE
     Indication: PLASMA CELL MYELOMA
     Route: 048
     Dates: start: 201111
  3. REVLIMID [Suspect]
     Active Substance: LENALIDOMIDE
     Route: 048
     Dates: start: 2013

REACTIONS (11)
  - Anuria [Recovered/Resolved]
  - Fatigue [Recovered/Resolved]
  - Personality change [Unknown]
  - Weight decreased [Unknown]
  - Dizziness [Recovered/Resolved]
  - Prostatic disorder [Recovered/Resolved]
  - Generalised erythema [Recovered/Resolved]
  - Neuropathy peripheral [Unknown]
  - Fall [Recovered/Resolved]
  - Rash [Unknown]
  - Asthenia [Recovered/Resolved]

NARRATIVE: CASE EVENT DATE: 2012
